FAERS Safety Report 23673603 (Version 2)
Quarter: 2024Q2

REPORT INFORMATION
  Report Type: Other
  Country: FR (occurrence: FR)
  Receive Date: 20240326
  Receipt Date: 20240401
  Transmission Date: 20240716
  Serious: Yes (Life-Threatening, Hospitalization, Other)
  Sender: FDA-Public Use
  Company Number: None

PATIENT
  Age: 62 Year
  Sex: Male

DRUGS (4)
  1. ENZALUTAMIDE [Suspect]
     Active Substance: ENZALUTAMIDE
     Indication: Prostate cancer
     Route: 048
     Dates: start: 20231109, end: 20231220
  2. ENZALUTAMIDE [Suspect]
     Active Substance: ENZALUTAMIDE
     Indication: Lung neoplasm malignant
  3. Decapeptyl [Concomitant]
     Indication: Lung neoplasm malignant
     Dosage: UNK UNK, UNKNOWN FREQ.
     Route: 058
     Dates: start: 20231109
  4. Decapeptyl [Concomitant]
     Indication: Prostate cancer

REACTIONS (2)
  - Myocardial infarction [Recovering/Resolving]
  - Off label use [Unknown]

NARRATIVE: CASE EVENT DATE: 20231109
